FAERS Safety Report 13329743 (Version 2)
Quarter: 2017Q2

REPORT INFORMATION
  Report Type: Spontaneous
  Country: US (occurrence: US)
  Receive Date: 20170313
  Receipt Date: 20170508
  Transmission Date: 20170830
  Serious: No
  Sender: FDA-Public Use
  Company Number: US-SHIRE-US201704822

PATIENT
  Age: 48 Year
  Sex: Male

DRUGS (3)
  1. XIIDRA [Suspect]
     Active Substance: LIFITEGRAST
     Indication: DRY EYE
     Dosage: 1 GTT, 2X/DAY:BID
     Route: 047
     Dates: start: 20161209, end: 201702
  2. MURO 128 [Concomitant]
     Active Substance: SODIUM CHLORIDE
     Indication: CORNEAL EROSION
     Dosage: UNK, 1X/DAY:QD AT NIGHT
     Route: 047
     Dates: start: 20160304
  3. REFRESH OPTIVE [Concomitant]
     Active Substance: CARBOXYMETHYLCELLULOSE SODIUM\GLYCERIN
     Indication: CORNEAL EROSION
     Dosage: 1 GTT, 3X/DAY:TID
     Route: 047
     Dates: start: 20141107

REACTIONS (1)
  - Instillation site reaction [Recovered/Resolved]

NARRATIVE: CASE EVENT DATE: 20170201
